FAERS Safety Report 10348851 (Version 1)
Quarter: 2014Q3

REPORT INFORMATION
  Report Type: Spontaneous
  Country: GB (occurrence: None)
  Receive Date: 20140725
  Receipt Date: 20140725
  Transmission Date: 20150326
  Serious: Yes (Disabling)
  Sender: FDA-Public Use
  Company Number: AUR-APL-2014-07868

PATIENT
  Age: 48 Year
  Sex: Female

DRUGS (5)
  1. CIPROFLOXACIN (CIPROFLOXACIN) [Suspect]
     Active Substance: CIPROFLOXACIN
     Indication: PRODUCT USED FOR UNKNOWN INDICATION
     Dosage: UNKNOWN
     Dates: start: 20140706
  2. ACICLOVIR (ACICLOVIR) [Concomitant]
     Active Substance: ACYCLOVIR
  3. CO-DYDRAMOL (DIHYDROCODEINE BITARTRATE, PRACETAMOL) [Concomitant]
  4. CHLORPHENAMINE (CHLORPHENAMINE) [Concomitant]
  5. CLOTRIMAZOLE (CLOTRIMAZOLE) [Concomitant]

REACTIONS (1)
  - Rash pruritic [None]

NARRATIVE: CASE EVENT DATE: 20140706
